FAERS Safety Report 26216798 (Version 1)
Quarter: 2025Q4

REPORT INFORMATION
  Report Type: Spontaneous
  Country: US (occurrence: US)
  Receive Date: 20251231
  Receipt Date: 20251231
  Transmission Date: 20260118
  Serious: Yes (Life-Threatening, Hospitalization)
  Sender: ACCORD
  Company Number: US-MLMSERVICE-20251210-PI744892-00153-1

PATIENT
  Age: 57 Year
  Sex: Male

DRUGS (3)
  1. AMITRIPTYLINE [Interacting]
     Active Substance: AMITRIPTYLINE
     Indication: Product used for unknown indication
     Route: 048
  2. FLUOXETINE [Interacting]
     Active Substance: FLUOXETINE HYDROCHLORIDE
     Indication: Product used for unknown indication
     Route: 048
  3. DOXEPIN [Interacting]
     Active Substance: DOXEPIN
     Indication: Product used for unknown indication
     Route: 048

REACTIONS (6)
  - Serotonin syndrome [Recovering/Resolving]
  - Pneumonia aspiration [Unknown]
  - Anticholinergic syndrome [Recovering/Resolving]
  - Drug interaction [Unknown]
  - Overdose [Unknown]
  - Unresponsive to stimuli [Recovering/Resolving]
